FAERS Safety Report 14419539 (Version 5)
Quarter: 2018Q3

REPORT INFORMATION
  Report Type: Report from Study
  Country: DE (occurrence: DE)
  Receive Date: 20180122
  Receipt Date: 20180717
  Transmission Date: 20181010
  Serious: Yes (Hospitalization)
  Sender: FDA-Public Use
  Company Number: DE-PFIZER INC-2018021515

PATIENT
  Age: 57 Year
  Sex: Female
  Weight: 48 kg

DRUGS (20)
  1. FENTANYL TTS [Concomitant]
     Active Substance: FENTANYL
     Indication: TUMOUR PAIN
     Dosage: 75 MG, 3X/DAY
     Route: 062
     Dates: start: 20170920, end: 201712
  2. PREGABALIN. [Concomitant]
     Active Substance: PREGABALIN
     Dosage: 50 MG, 1X/DAY
     Route: 048
     Dates: start: 20170920
  3. UNACID [Concomitant]
     Indication: PNEUMONIA
     Dosage: 9 G, 1X/DAY
     Route: 041
     Dates: start: 20171221, end: 20171230
  4. CARBOPLATIN. [Suspect]
     Active Substance: CARBOPLATIN
     Indication: NON-SMALL CELL LUNG CANCER
     Dosage: 6 MG*MIN/ML, UNK
     Route: 041
     Dates: start: 20171214, end: 20180308
  5. ABRAXANE [Suspect]
     Active Substance: PACLITAXEL
     Indication: NON-SMALL CELL LUNG CANCER
     Dosage: 100 MILLIGRAM/SQ. METER
     Route: 041
     Dates: start: 20171214
  6. PREGABALIN. [Concomitant]
     Active Substance: PREGABALIN
     Indication: TUMOUR PAIN
     Dosage: 450 MG, 1X/DAY
     Route: 048
     Dates: start: 20170920, end: 201804
  7. FENISTIL [Concomitant]
     Active Substance: DIMETHINDENE
     Indication: PROPHYLAXIS
     Dosage: 4 MG, UNK
     Route: 041
     Dates: start: 20171214, end: 20180308
  8. SEVREDOL [Concomitant]
     Active Substance: MORPHINE
     Indication: TUMOUR PAIN
     Dosage: 10 MG, 1X/DAY
     Route: 041
     Dates: start: 20180118, end: 20180118
  9. MSI [Concomitant]
     Active Substance: MORPHINE SULFATE
     Indication: TUMOUR PAIN
     Dosage: 2 MG, UNK
     Route: 041
     Dates: start: 20171221, end: 20171221
  10. METOCLOPRAMIDE. [Concomitant]
     Active Substance: METOCLOPRAMIDE
     Dosage: 10 MG, UNK
     Route: 048
     Dates: start: 2018, end: 2018
  11. MOVICOL [Concomitant]
     Active Substance: POLYETHYLENE GLYCOL 3350\POTASSIUM CHLORIDE\SODIUM BICARBONATE\SODIUM CHLORIDE
     Indication: PROPHYLAXIS
     Dosage: 13.7 MG, 1X/DAY
     Route: 048
     Dates: start: 20171221, end: 2018
  12. METOCLOPRAMIDE. [Concomitant]
     Active Substance: METOCLOPRAMIDE
     Indication: PROPHYLAXIS
     Dosage: 1 ML, UNK
     Route: 048
     Dates: start: 20171207, end: 201804
  13. ETORICOXIB. [Concomitant]
     Active Substance: ETORICOXIB
     Indication: TUMOUR PAIN
     Dosage: 60 MG, 1X/DAY
     Route: 048
     Dates: start: 20171207, end: 2018
  14. RANITIC [Concomitant]
     Active Substance: RANITIDINE HYDROCHLORIDE
     Indication: PROPHYLAXIS
     Dosage: 50 MG, UNK
     Route: 041
     Dates: start: 20171214, end: 20180308
  15. DECORTIN [Concomitant]
     Active Substance: PREDNISONE
     Indication: PROPHYLAXIS
     Dosage: 100 MG, UNK
     Route: 041
     Dates: start: 20171214, end: 20180308
  16. PANTOZOL [Concomitant]
     Active Substance: PANTOPRAZOLE SODIUM
     Indication: PROPHYLAXIS
     Dosage: 40 MG, 1X/DAY
     Route: 048
     Dates: start: 20171207
  17. KEVATRIL [Concomitant]
     Active Substance: GRANISETRON HYDROCHLORIDE
     Indication: PROPHYLAXIS
     Dosage: 3 MG, UNK
     Route: 041
     Dates: start: 20171214, end: 20180308
  18. BEN U RON [Concomitant]
     Indication: TUMOUR PAIN
     Dosage: 1500 MG, 1X/DAY
     Route: 048
     Dates: start: 20171207, end: 20171221
  19. KEVATRIL [Concomitant]
     Active Substance: GRANISETRON HYDROCHLORIDE
     Dosage: 2 MG, UNK
     Route: 048
     Dates: start: 20171221, end: 201803
  20. AMITRIPTYLLIN [Concomitant]
     Indication: TUMOUR PAIN
     Dosage: 30 MILLIGRAM
     Route: 048
     Dates: start: 20170920, end: 20171221

REACTIONS (7)
  - Platelet count decreased [Recovered/Resolved]
  - Vomiting [Recovered/Resolved]
  - Pneumonia [Recovered/Resolved]
  - Nausea [Recovered/Resolved]
  - Anaemia [Recovered/Resolved]
  - General physical health deterioration [Recovered/Resolved]
  - White blood cell count decreased [Recovered/Resolved]

NARRATIVE: CASE EVENT DATE: 20171220
